FAERS Safety Report 15140433 (Version 1)
Quarter: 2018Q3

REPORT INFORMATION
  Report Type: Spontaneous
  Country: US (occurrence: US)
  Receive Date: 20180618
  Receipt Date: 20180618
  Transmission Date: 20181010
  Serious: Yes (Other)
  Sender: FDA-Public Use
  Company Number: None

PATIENT
  Age: 64 Year
  Sex: Male
  Weight: 103.5 kg

DRUGS (6)
  1. LEXAPRO [Concomitant]
     Active Substance: ESCITALOPRAM OXALATE
  2. METRONIDAZOLE 250 MG TABLETS [Suspect]
     Active Substance: METRONIDAZOLE
     Indication: JAW DISORDER
     Dosage: ?          QUANTITY:1 TABLET(S);?
     Route: 048
     Dates: start: 20180607, end: 20180613
  3. METRONIDAZOLE 250 MG TABLETS [Suspect]
     Active Substance: METRONIDAZOLE
     Indication: TOOTH INFECTION
     Dosage: ?          QUANTITY:1 TABLET(S);?
     Route: 048
     Dates: start: 20180607, end: 20180613
  4. CENTRUM SILVER [Concomitant]
     Active Substance: MINERALS\VITAMINS
  5. METRONIDAZOLE 250 MG TABLETS [Suspect]
     Active Substance: METRONIDAZOLE
     Indication: OSTEOMYELITIS
     Dosage: ?          QUANTITY:1 TABLET(S);?
     Route: 048
     Dates: start: 20180607, end: 20180613
  6. METAMUCIL [Concomitant]
     Active Substance: PLANTAGO SEED

REACTIONS (2)
  - Irritability [None]
  - Anger [None]

NARRATIVE: CASE EVENT DATE: 20180613
